FAERS Safety Report 15126132 (Version 3)
Quarter: 2018Q3

REPORT INFORMATION
  Report Type: Spontaneous
  Country: JP (occurrence: JP)
  Receive Date: 20180710
  Receipt Date: 20180809
  Transmission Date: 20181010
  Serious: Yes (Hospitalization, Other)
  Sender: FDA-Public Use
  Company Number: JP-SHIRE-JP201808961AA

PATIENT
  Age: 70 Year
  Sex: Male
  Weight: 61 kg

DRUGS (11)
  1. ADVATE [Suspect]
     Active Substance: ANTIHEMOPHILIC FACTOR, HUMAN RECOMBINANT
     Indication: HAEMOSTASIS
     Dosage: 4000IU, ONE DOSE
     Route: 042
     Dates: start: 201805
  2. HEMOFIL M [Concomitant]
     Active Substance: ANTIHEMOPHILIC FACTOR HUMAN
     Dosage: UNK
  3. ADVATE [Suspect]
     Active Substance: ANTIHEMOPHILIC FACTOR, HUMAN RECOMBINANT
     Dosage: 2000IU, 3X A WEEK(MON.WED. FRI)
     Route: 042
     Dates: start: 201805
  4. ADVATE [Suspect]
     Active Substance: ANTIHEMOPHILIC FACTOR, HUMAN RECOMBINANT
     Indication: FACTOR VIII DEFICIENCY
     Dosage: 2000IU, 3X A WEEK(MON.WED. FRI)
     Route: 042
     Dates: start: 201804
  5. ADVATE [Suspect]
     Active Substance: ANTIHEMOPHILIC FACTOR, HUMAN RECOMBINANT
     Indication: HAEMOPHILIC PSEUDOTUMOUR
     Dosage: 2000IU, AS REQ^D
     Route: 042
     Dates: start: 200808
  6. ADVATE [Suspect]
     Active Substance: ANTIHEMOPHILIC FACTOR, HUMAN RECOMBINANT
     Dosage: 2000 IU, 2X/DAY:BID
     Route: 042
     Dates: start: 201805
  7. ADVATE [Suspect]
     Active Substance: ANTIHEMOPHILIC FACTOR, HUMAN RECOMBINANT
     Dosage: 2000 UNK, 1X/DAY:QD
     Route: 042
     Dates: start: 201805
  8. CROSS EIGHT M [Concomitant]
     Active Substance: ANTIHEMOPHILIC FACTOR HUMAN
     Indication: FACTOR VIII DEFICIENCY
     Dosage: UNK UNK, AS REQ^D
     Route: 065
  9. RECOMBINATE [Concomitant]
     Active Substance: ANTIHEMOPHILIC FACTOR, HUMAN RECOMBINANT
     Indication: FACTOR VIII DEFICIENCY
     Dosage: UNK UNK, AS REQ^D
     Route: 065
  10. HEMOFIL M [Concomitant]
     Active Substance: ANTIHEMOPHILIC FACTOR HUMAN
     Indication: FACTOR VIII DEFICIENCY
     Dosage: UNK UNK, AS REQ^D
     Route: 065
  11. CONFACT F [Concomitant]
     Active Substance: ANTIHEMOPHILIC FACTOR HUMAN
     Indication: FACTOR VIII DEFICIENCY
     Dosage: UNK, AS REQ^D
     Route: 065

REACTIONS (8)
  - Haematoma [Unknown]
  - Haematoma [Unknown]
  - Fistula [Recovered/Resolved]
  - Infected fistula [Recovered/Resolved]
  - Muscle haemorrhage [Not Recovered/Not Resolved]
  - Haemophilic pseudotumour [Recovered/Resolved]
  - Haemorrhage [Recovered/Resolved]
  - Subcutaneous haematoma [Unknown]

NARRATIVE: CASE EVENT DATE: 20120510
